FAERS Safety Report 20807469 (Version 2)
Quarter: 2022Q3

REPORT INFORMATION
  Report Type: Spontaneous
  Country: IN (occurrence: IN)
  Receive Date: 20220510
  Receipt Date: 20220720
  Transmission Date: 20221026
  Serious: Yes (Hospitalization, Other)
  Sender: FDA-Public Use
  Company Number: IN-CIPLA LTD.-2022IN02943

PATIENT
  Age: 30 Year
  Sex: Female

DRUGS (2)
  1. WARFARIN [Suspect]
     Active Substance: WARFARIN
     Indication: Anticoagulant therapy
     Dosage: 2 MILLIGRAM, QD
     Route: 065
  2. WARFARIN [Suspect]
     Active Substance: WARFARIN
     Dosage: 1 MILLIGRAM, QD
     Route: 065

REACTIONS (3)
  - Coagulopathy [Recovered/Resolved]
  - Anaemia [Recovered/Resolved]
  - Haemoperitoneum [Recovered/Resolved]
